FAERS Safety Report 16135475 (Version 1)
Quarter: 2019Q1

REPORT INFORMATION
  Report Type: Spontaneous
  Country: US (occurrence: US)
  Receive Date: 20190329
  Receipt Date: 20190329
  Transmission Date: 20190418
  Serious: No
  Sender: FDA-Public Use
  Company Number: US-HORIZON-PEN-0327-2019

PATIENT
  Sex: Female

DRUGS (2)
  1. PRISTIQ EXTENDED-RELEASE [Concomitant]
     Active Substance: DESVENLAFAXINE SUCCINATE
  2. PENNSAID [Suspect]
     Active Substance: DICLOFENAC SODIUM
     Indication: PAIN IN EXTREMITY
     Dosage: AS NEEDED
     Dates: start: 201809

REACTIONS (3)
  - Drug effect decreased [Not Recovered/Not Resolved]
  - Insurance issue [Not Recovered/Not Resolved]
  - Off label use [Not Recovered/Not Resolved]
